FAERS Safety Report 16304038 (Version 1)
Quarter: 2019Q2

REPORT INFORMATION
  Report Type: Spontaneous
  Country: US (occurrence: US)
  Receive Date: 20190513
  Receipt Date: 20190513
  Transmission Date: 20190711
  Serious: Yes (Other)
  Sender: FDA-Public Use
  Company Number: US-NAPPMUNDI-USA-2019-0147095

PATIENT
  Sex: Male

DRUGS (4)
  1. OXYCODONE HYDROCHLORIDE. [Suspect]
     Active Substance: OXYCODONE HYDROCHLORIDE
     Indication: MULTIPLE SCLEROSIS
     Dosage: 20 MG AND 30 MG
     Route: 048
  2. MS CONTIN [Suspect]
     Active Substance: MORPHINE SULFATE
     Indication: MUSCULAR DYSTROPHY
  3. OXYCODONE HYDROCHLORIDE. [Suspect]
     Active Substance: OXYCODONE HYDROCHLORIDE
     Indication: MUSCULAR DYSTROPHY
  4. MS CONTIN [Suspect]
     Active Substance: MORPHINE SULFATE
     Indication: MULTIPLE SCLEROSIS
     Route: 048

REACTIONS (4)
  - Road traffic accident [Unknown]
  - Spinal fracture [Unknown]
  - Impaired driving ability [Unknown]
  - Hernia [Unknown]
